FAERS Safety Report 8043028-5 (Version None)
Quarter: 2012Q1

REPORT INFORMATION
  Report Type: 
  Country: None (occurrence: None)
  Receive Date: 20120112
  Receipt Date: 20120105
  Transmission Date: 20120608
  Serious: Yes (Hospitalization, Other)
  Sender: FDA-Public Use
  Company Number: PHHY2012BR001516

PATIENT
  Sex: Female
  Weight: 56 kg

DRUGS (3)
  1. DIOVAN [Suspect]
     Dosage: 320 MG, DIALY
     Route: 048
  2. DIOVAN [Suspect]
     Indication: HYPERTENSION
     Dosage: 160 MG, DIALY
     Route: 048
  3. ATENOLOL [Concomitant]
     Dosage: 25 MG, UNK

REACTIONS (5)
  - CARDIAC VALVE DISEASE [None]
  - HEAD INJURY [None]
  - SYNCOPE [None]
  - FALL [None]
  - INTERVERTEBRAL DISC PROTRUSION [None]
